FAERS Safety Report 8474436-6 (Version None)
Quarter: 2012Q2

REPORT INFORMATION
  Report Type: 
  Country: None (occurrence: None)
  Receive Date: 20120628
  Receipt Date: 20120622
  Transmission Date: 20120825
  Serious: Yes (Hospitalization, Other)
  Sender: FDA-Public Use
  Company Number: PHHY2012AR054502

PATIENT
  Sex: Male

DRUGS (1)
  1. EXELON [Suspect]
     Indication: AMNESIA
     Dosage: 1.5 MG, BID
     Dates: start: 20080101

REACTIONS (4)
  - OSTEOARTHRITIS [None]
  - ARTHROPATHY [None]
  - FEELING ABNORMAL [None]
  - PYREXIA [None]
